FAERS Safety Report 4387814-1 (Version None)
Quarter: 2004Q2

REPORT INFORMATION
  Report Type: 
  Country: None (occurrence: None)
  Receive Date: 20040623
  Receipt Date: 20040603
  Transmission Date: 20050107
  Serious: Yes (Hospitalization, Other)
  Sender: FDA-Public Use
  Company Number: USA040465779

PATIENT
  Age: 79 Year
  Sex: Female
  Weight: 60 kg

DRUGS (3)
  1. FORTEO [Suspect]
     Indication: OSTEOPOROSIS
     Dosage: 20 UG/1 DAY
     Dates: start: 20031030
  2. DURAGESIC [Concomitant]
  3. PREDNISONE [Concomitant]

REACTIONS (5)
  - BONE PAIN [None]
  - CHEST WALL PAIN [None]
  - DRUG INEFFECTIVE [None]
  - THORACIC VERTEBRAL FRACTURE [None]
  - WEIGHT DECREASED [None]
